FAERS Safety Report 6504978-1 (Version None)
Quarter: 2009Q4

REPORT INFORMATION
  Report Type: 
  Country: None (occurrence: None)
  Receive Date: 20091216
  Receipt Date: 20091201
  Transmission Date: 20100525
  Serious: Yes (Hospitalization)
  Sender: FDA-Public Use
  Company Number: DSJ-2009-15416

PATIENT
  Age: 66 Year
  Sex: Male

DRUGS (13)
  1. OLMESARTAN MEDOXOMIL [Suspect]
     Indication: BLOOD PRESSURE INCREASED
     Dosage: 20 MG,PER ORAL ; 40 MG,PER ORAL ; 80 MG,PER ORAL
     Route: 048
     Dates: start: 20090903, end: 20090914
  2. OLMESARTAN MEDOXOMIL [Suspect]
     Indication: BLOOD PRESSURE INCREASED
     Dosage: 20 MG,PER ORAL ; 40 MG,PER ORAL ; 80 MG,PER ORAL
     Route: 048
     Dates: start: 20090915, end: 20091110
  3. OLMESARTAN MEDOXOMIL [Suspect]
     Indication: BLOOD PRESSURE INCREASED
     Dosage: 20 MG,PER ORAL ; 40 MG,PER ORAL ; 80 MG,PER ORAL
     Route: 048
     Dates: start: 20091111, end: 20091111
  4. DILTIAZEM HCL [Suspect]
     Indication: PRINZMETAL ANGINA
     Dosage: 100 MG,PER ORAL ; 200 MG,PER ORAL
     Route: 048
     Dates: start: 20091110, end: 20091110
  5. DILTIAZEM HCL [Suspect]
     Indication: PRINZMETAL ANGINA
     Dosage: 100 MG,PER ORAL ; 200 MG,PER ORAL
     Route: 048
     Dates: start: 20091111, end: 20091111
  6. BISOPROLOL FUMARATE [Suspect]
     Indication: BLOOD PRESSURE INCREASED
     Dosage: 5 MG,PER ORAL ; 10 MG,PER ORAL
     Route: 048
     Dates: start: 20090903, end: 20091110
  7. BISOPROLOL FUMARATE [Suspect]
     Indication: BLOOD PRESSURE INCREASED
     Dosage: 5 MG,PER ORAL ; 10 MG,PER ORAL
     Route: 048
     Dates: start: 20091111, end: 20091111
  8. NIFEDIPINE [Suspect]
     Indication: BLOOD PRESSURE INCREASED
     Dosage: 40 MG,PER ORAL ; 60 MG,PER ORAL ; 80 MG,PER ORAL
     Route: 048
     Dates: start: 20090903, end: 20090914
  9. NIFEDIPINE [Suspect]
     Indication: BLOOD PRESSURE INCREASED
     Dosage: 40 MG,PER ORAL ; 60 MG,PER ORAL ; 80 MG,PER ORAL
     Route: 048
     Dates: start: 20090915, end: 20091110
  10. NIFEDIPINE [Suspect]
     Indication: BLOOD PRESSURE INCREASED
     Dosage: 40 MG,PER ORAL ; 60 MG,PER ORAL ; 80 MG,PER ORAL
     Route: 048
     Dates: start: 20091111, end: 20091111
  11. TRICHLORMETHIAZIDE [Suspect]
     Indication: BLOOD PRESSURE INCREASED
     Dosage: 2 MG,PER ORAL ; 4 MG,PER ORAL
     Route: 048
     Dates: start: 20090915, end: 20091110
  12. TRICHLORMETHIAZIDE [Suspect]
     Indication: BLOOD PRESSURE INCREASED
     Dosage: 2 MG,PER ORAL ; 4 MG,PER ORAL
     Route: 048
     Dates: start: 20091111, end: 20091111
  13. HALCION [Concomitant]

REACTIONS (13)
  - BLOOD PRESSURE DECREASED [None]
  - BRADYCARDIA [None]
  - CARDIAC ARREST [None]
  - CARDIO-RESPIRATORY ARREST [None]
  - COLD SWEAT [None]
  - DEPRESSED LEVEL OF CONSCIOUSNESS [None]
  - DIZZINESS [None]
  - DYSPNOEA EXERTIONAL [None]
  - FEELING ABNORMAL [None]
  - INCORRECT DOSE ADMINISTERED [None]
  - NO THERAPEUTIC RESPONSE [None]
  - NODAL RHYTHM [None]
  - PRINZMETAL ANGINA [None]
